FAERS Safety Report 18488336 (Version 1)
Quarter: 2020Q4

REPORT INFORMATION
  Report Type: Report from Study
  Country: IT (occurrence: IT)
  Receive Date: 20201111
  Receipt Date: 20201111
  Transmission Date: 20210114
  Serious: Yes (Other)
  Sender: FDA-Public Use
  Company Number: IT-AUROBINDO-AUR-APL-2020-054892

PATIENT
  Age: 18 Year
  Sex: Female
  Weight: 60 kg

DRUGS (6)
  1. STIRIPENTOL [Concomitant]
     Active Substance: STIRIPENTOL
     Indication: SEVERE MYOCLONIC EPILEPSY OF INFANCY
     Route: 065
  2. CANNABIDIOL [Interacting]
     Active Substance: CANNABIDIOL
     Dosage: 5 MILLIGRAM/KILOGRAM, ONCE A DAY
     Route: 048
     Dates: start: 201901, end: 201901
  3. SODIUM VALPROATE 300MG [Suspect]
     Active Substance: VALPROATE SODIUM
     Indication: SEVERE MYOCLONIC EPILEPSY OF INFANCY
     Dosage: 600 MILLIGRAM, ONCE A DAY
     Route: 065
     Dates: end: 201903
  4. CANNABIDIOL [Interacting]
     Active Substance: CANNABIDIOL
     Dosage: 15 MILLIGRAM/KILOGRAM, ONCE A DAY
     Route: 048
     Dates: start: 2019
  5. CLOBAZAM. [Concomitant]
     Active Substance: CLOBAZAM
     Indication: SEVERE MYOCLONIC EPILEPSY OF INFANCY
     Route: 065
  6. CANNABIDIOL [Interacting]
     Active Substance: CANNABIDIOL
     Indication: SEVERE MYOCLONIC EPILEPSY OF INFANCY
     Dosage: 10 MILLIGRAM/KILOGRAM, ONCE A DAY
     Route: 048
     Dates: start: 201901, end: 2019

REACTIONS (6)
  - Alanine aminotransferase increased [Recovered/Resolved]
  - Platelet count decreased [Recovered/Resolved]
  - Aspartate aminotransferase increased [Recovering/Resolving]
  - Drug level increased [Recovering/Resolving]
  - Drug interaction [Recovering/Resolving]
  - Drug-induced liver injury [Recovering/Resolving]

NARRATIVE: CASE EVENT DATE: 201902
